FAERS Safety Report 19800043 (Version 2)
Quarter: 2021Q3

REPORT INFORMATION
  Report Type: Report from Study
  Country: None (occurrence: US)
  Receive Date: 20210907
  Receipt Date: 20210915
  Transmission Date: 20211014
  Serious: Yes (Hospitalization, Other)
  Sender: FDA-Public Use
  Company Number: US-ABBVIE-21K-163-4068251-00

PATIENT
  Age: 38 Year
  Sex: Female
  Weight: 124.4 kg

DRUGS (3)
  1. SKYRIZI [Suspect]
     Active Substance: RISANKIZUMAB-RZAA
     Route: 058
     Dates: start: 201811, end: 201811
  2. SKYRIZI [Suspect]
     Active Substance: RISANKIZUMAB-RZAA
     Indication: PSORIASIS
     Route: 058
     Dates: start: 201810, end: 201810
  3. SKYRIZI [Suspect]
     Active Substance: RISANKIZUMAB-RZAA
     Route: 058
     Dates: start: 2019, end: 2019

REACTIONS (7)
  - Pulmonary thrombosis [Recovered/Resolved]
  - Respiratory failure [Recovering/Resolving]
  - Psoriasis [Recovered/Resolved]
  - Sepsis [Recovered/Resolved]
  - SARS-CoV-2 test positive [Recovering/Resolving]
  - Pneumonia [Recovered/Resolved]
  - Parosmia [Recovered/Resolved]

NARRATIVE: CASE EVENT DATE: 2021
